FAERS Safety Report 5825347-3 (Version None)
Quarter: 2008Q3

REPORT INFORMATION
  Report Type: 
  Country: None (occurrence: None)
  Receive Date: 20080722
  Receipt Date: 20070823
  Transmission Date: 20090109
  Serious: Yes (Hospitalization)
  Sender: FDA-Public Use
  Company Number: 2007BI017855

PATIENT
  Age: 61 Year
  Sex: Female
  Weight: 87.0906 kg

DRUGS (2)
  1. AVONEX [Suspect]
     Indication: MULTIPLE SCLEROSIS
     Dosage: 30 UG;QW;IM
     Route: 030
     Dates: start: 20061001
  2. GLYBURIDE [Concomitant]

REACTIONS (2)
  - CONVULSION [None]
  - HEADACHE [None]
